FAERS Safety Report 18322088 (Version 1)
Quarter: 2020Q3

REPORT INFORMATION
  Report Type: Spontaneous
  Country: GB (occurrence: GB)
  Receive Date: 20200929
  Receipt Date: 20200929
  Transmission Date: 20201103
  Serious: Yes (Congenital Anomaly)
  Sender: FDA-Public Use
  Company Number: GB-ACCORD-202948

PATIENT
  Sex: Female

DRUGS (2)
  1. FOLIC ACID. [Concomitant]
     Active Substance: FOLIC ACID
  2. SERTRALINE [Suspect]
     Active Substance: SERTRALINE HYDROCHLORIDE
     Indication: PREMENSTRUAL DYSPHORIC DISORDER
     Dosage: REDUCING GRADUALLY FROM 4 WEEKS GESTATION TO 12 WEEKS GESTATION WHEN?STOPPED
     Route: 064

REACTIONS (2)
  - Foetal exposure during pregnancy [Unknown]
  - Tracheo-oesophageal fistula [Recovering/Resolving]
